FAERS Safety Report 22263706 (Version 1)
Quarter: 2023Q2

REPORT INFORMATION
  Report Type: Spontaneous
  Country: US (occurrence: US)
  Receive Date: 20230428
  Receipt Date: 20230428
  Transmission Date: 20230722
  Serious: No
  Sender: FDA-Public Use
  Company Number: US-TARO PHARMACEUTICALS USA INC.-2023TAR00166

PATIENT

DRUGS (1)
  1. FLUOROURACIL [Suspect]
     Active Substance: FLUOROURACIL
     Indication: Squamous cell carcinoma
     Dosage: UNK, BID, TO LESION ON RIGHT TEMPLE, GOOD AMOUNT
     Route: 061
     Dates: start: 202212, end: 20230202

REACTIONS (1)
  - Condition aggravated [Not Recovered/Not Resolved]
